FAERS Safety Report 6970355-2 (Version None)
Quarter: 2010Q3

REPORT INFORMATION
  Report Type: 
  Country: None (occurrence: None)
  Receive Date: 20100908
  Receipt Date: 20100901
  Transmission Date: 20110219
  Serious: Yes (Other)
  Sender: FDA-Public Use
  Company Number: US-SANOFI-AVENTIS-2010SA048116

PATIENT
  Age: 66 Year
  Sex: Male
  Weight: 92.53 kg

DRUGS (8)
  1. MULTAQ [Suspect]
     Indication: ATRIAL FIBRILLATION
     Route: 048
     Dates: start: 20100718
  2. COUMADIN [Interacting]
     Dosage: 4 MG TUESDAY AND THURSDAY, 5 MG THE REST OF THE WEEK
     Route: 048
     Dates: end: 20100727
  3. COUMADIN [Interacting]
     Route: 048
     Dates: start: 20100729
  4. SIMVASTATIN [Concomitant]
  5. FOLIC ACID [Concomitant]
  6. MESALAMINE [Concomitant]
  7. LOTREL [Concomitant]
     Indication: HYPERTENSION
     Dosage: 5/10 MG
  8. ASPIRIN [Concomitant]

REACTIONS (2)
  - DRUG INTERACTION [None]
  - INTERNATIONAL NORMALISED RATIO INCREASED [None]
